FAERS Safety Report 19001004 (Version 1)
Quarter: 2021Q1

REPORT INFORMATION
  Report Type: Spontaneous
  Country: US (occurrence: US)
  Receive Date: 20210311
  Receipt Date: 20210311
  Transmission Date: 20210420
  Serious: No
  Sender: FDA-Public Use
  Company Number: US-GLENMARK PHARMACEUTICALS-2020GMK049891

PATIENT

DRUGS (2)
  1. MUPIROCIN OINTMENT USP, 2% [Suspect]
     Active Substance: MUPIROCIN
     Indication: STAPHYLOCOCCAL INFECTION
     Dosage: UNK, (ROUTE: INTRANASAL) (START DATE: 4 YEARS BEFORE REPORT)
     Route: 045
  2. PIRNUO [Suspect]
     Active Substance: MUPIROCIN CALCIUM
     Indication: NASAL ULCER
     Dosage: UNK, (ROUTE: INTRANASAL)
     Route: 045

REACTIONS (2)
  - No adverse event [Unknown]
  - Incorrect route of product administration [Unknown]
